FAERS Safety Report 4834054-5 (Version None)
Quarter: 2005Q4

REPORT INFORMATION
  Report Type: 
  Country: None (occurrence: None)
  Receive Date: 20051118
  Receipt Date: 20051118
  Transmission Date: 20060501
  Serious: Yes (Death, Hospitalization)
  Sender: FDA-Public Use
  Company Number: None

PATIENT
  Sex: Male
  Weight: 33 kg

DRUGS (6)
  1. CYCLOPHOSPHAMIDE [Suspect]
     Indication: PRECURSOR T-LYMPHOBLASTIC LYMPHOMA/LEUKAEMIA
     Dosage: SEE IMAGE
     Dates: start: 20051104, end: 20051104
  2. CYCLOPHOSPHAMIDE [Suspect]
     Indication: PRECURSOR T-LYMPHOBLASTIC LYMPHOMA/LEUKAEMIA
     Dosage: SEE IMAGE
     Dates: start: 20051102
  3. DAUNORUBICIN [Suspect]
     Dosage: SEE IMAGE
     Dates: start: 20051102, end: 20051104
  4. DEXAMETHASONE [Suspect]
     Dosage: SEE IMAGE
     Dates: start: 20051102, end: 20051112
  5. L-ASPARAGINASE [Suspect]
     Dosage: SEE IMAGE
     Dates: start: 20051105, end: 20051111
  6. VINCRISTINE SULFATE [Suspect]
     Dosage: SEE IMAGE
     Dates: start: 20051102, end: 20051109

REACTIONS (12)
  - BLOOD CULTURE POSITIVE [None]
  - BRADYCARDIA [None]
  - DISSEMINATED INTRAVASCULAR COAGULATION [None]
  - HYPOTENSION [None]
  - LETHARGY [None]
  - PAIN IN EXTREMITY [None]
  - PERICARDIAL EFFUSION [None]
  - PLEURAL EFFUSION [None]
  - PNEUMONIA [None]
  - PULMONARY OEDEMA [None]
  - RESPIRATORY ACIDOSIS [None]
  - STAPHYLOCOCCAL INFECTION [None]
